FAERS Safety Report 8925664 (Version 2)
Quarter: 2013Q1

REPORT INFORMATION
  Report Type: Spontaneous
  Country: NZ (occurrence: NZ)
  Receive Date: 20121126
  Receipt Date: 20130221
  Transmission Date: 20140127
  Serious: Yes (Hospitalization, Other)
  Sender: FDA-Public Use
  Company Number: NZ-ELI_LILLY_AND_COMPANY-NZ201211003660

PATIENT
  Age: 52 Year
  Sex: Female

DRUGS (3)
  1. ZYPREXA RELPREVV [Suspect]
     Indication: SCHIZOPHRENIA
     Dosage: 300 MG, 2/M
     Dates: start: 201009
  2. ZYPREXA RELPREVV [Suspect]
     Dosage: 405 MG, 2/M
  3. MYLANTA [Concomitant]
     Dosage: UNK, UNKNOWN
     Dates: start: 20120912

REACTIONS (6)
  - Confusional state [Recovered/Resolved]
  - Agitation [Recovered/Resolved]
  - Injection site haemorrhage [Recovered/Resolved]
  - Dyspepsia [Recovered/Resolved]
  - Irritability [Recovered/Resolved]
  - Prescribed overdose [Not Recovered/Not Resolved]
